FAERS Safety Report 5162395-3 (Version None)
Quarter: 2006Q4

REPORT INFORMATION
  Report Type: 
  Country: None (occurrence: None)
  Receive Date: 20061128
  Receipt Date: 20061128
  Transmission Date: 20070319
  Serious: Yes (Other)
  Sender: FDA-Public Use
  Company Number: None

PATIENT
  Age: 64 Year
  Sex: Male
  Weight: 126.4629 kg

DRUGS (14)
  1. CRESTOR [Suspect]
     Indication: HYPERLIPIDAEMIA
     Dosage: 20 MG PO QD
     Route: 048
  2. LOVASTATIN [Suspect]
     Indication: HYPERLIPIDAEMIA
     Dosage: 20 MG PO QHS
     Route: 048
  3. FELODIPINE [Concomitant]
  4. CLOPIDOGREL [Concomitant]
  5. METOPROLOL TARTRATE [Concomitant]
  6. ASPIRIN [Concomitant]
  7. LISINOPRIL AND HYDROCHLOROTHIAZIDE [Concomitant]
  8. GLYBURIDE [Concomitant]
  9. DICLOFENAC NA [Concomitant]
  10. ROSIGLITAZONE [Concomitant]
  11. METFORMIN HCL [Concomitant]
  12. NOVOLIN N [Concomitant]
  13. ARTIFICIAL TEARS [Concomitant]
  14. INSULIN SYRINGES [Concomitant]

REACTIONS (1)
  - RASH [None]
